FAERS Safety Report 10027900 (Version 3)
Quarter: 2014Q2

REPORT INFORMATION
  Report Type: Spontaneous
  Country: US (occurrence: US)
  Receive Date: 20140321
  Receipt Date: 20140630
  Transmission Date: 20141212
  Serious: Yes (Other)
  Sender: FDA-Public Use
  Company Number: US-PFIZER INC-2014075859

PATIENT
  Age: 60 Year
  Sex: Female

DRUGS (6)
  1. LIPITOR [Suspect]
     Indication: LOW DENSITY LIPOPROTEIN INCREASED
     Dosage: 10 MG, 1X/DAY
     Route: 048
     Dates: start: 200302
  2. LIPITOR [Suspect]
     Indication: CARDIOVASCULAR EVENT PROPHYLAXIS
  3. MULTIPLE VITAMINS [Concomitant]
     Indication: MALAISE
     Dosage: UNK
  4. VITAMIN D [Concomitant]
     Indication: MALAISE
     Dosage: 400 IU, 1X/DAY
  5. FLAXSEED [Concomitant]
     Indication: MALAISE
     Dosage: ^1000^ ONCE DAILY
  6. PAXIL [Concomitant]
     Indication: ANXIETY
     Dosage: 37.5 MG, 1X/DAY

REACTIONS (4)
  - Type 2 diabetes mellitus [Not Recovered/Not Resolved]
  - Exostosis [Not Recovered/Not Resolved]
  - Joint injury [Not Recovered/Not Resolved]
  - Limb injury [Not Recovered/Not Resolved]
